FAERS Safety Report 4587946-9 (Version None)
Quarter: 2005Q1

REPORT INFORMATION
  Report Type: 
  Country: None (occurrence: None)
  Receive Date: 20050215
  Receipt Date: 20050201
  Transmission Date: 20050727
  Serious: Yes (Other)
  Sender: FDA-Public Use
  Company Number: 26038

PATIENT
  Age: 78 Year
  Sex: Male

DRUGS (1)
  1. ALDARA [Suspect]
     Indication: BASAL CELL CARCINOMA
     Dosage: TOPICAL
     Route: 061
     Dates: start: 20040901

REACTIONS (4)
  - CARDIAC FAILURE [None]
  - DIFFICULTY IN WALKING [None]
  - DYSPNOEA [None]
  - PALPITATIONS [None]
